FAERS Safety Report 9612465 (Version 3)
Quarter: 2014Q3

REPORT INFORMATION
  Report Type: Spontaneous
  Country: JP (occurrence: JP)
  Receive Date: 20131010
  Receipt Date: 20140710
  Transmission Date: 20150326
  Serious: Yes (Death, Other)
  Sender: FDA-Public Use
  Company Number: JP-ROCHE-1285535

PATIENT
  Age: 58 Year
  Sex: Female
  Weight: 61 kg

DRUGS (28)
  1. HERCEPTIN [Suspect]
     Active Substance: TRASTUZUMAB
     Route: 041
     Dates: start: 20130926, end: 20130926
  2. DECADRON [Concomitant]
     Active Substance: DEXAMETHASONE
     Dosage: DOSAGE IS UNCERTAIN.
     Route: 065
  3. SEISHOKU [Concomitant]
     Active Substance: SODIUM CHLORIDE
     Dosage: DOSAGE IS UNCERTAIN.
     Route: 065
  4. THYRADIN [Concomitant]
     Active Substance: LEVOTHYROXINE
     Dosage: DOSAGE IS UNCERTAIN.
     Route: 065
  5. ENSURE LIQUID [Concomitant]
     Dosage: DOSAGE IS UNCERTAIN.
     Route: 065
  6. XELODA [Concomitant]
     Active Substance: CAPECITABINE
     Indication: BREAST CANCER RECURRENT
     Route: 048
     Dates: start: 200911
  7. HERCEPTIN [Suspect]
     Active Substance: TRASTUZUMAB
     Route: 041
     Dates: start: 20130603, end: 20130812
  8. LASIX [Concomitant]
     Active Substance: FUROSEMIDE
     Dosage: DOSAGE IS UNCERTAIN.
     Route: 065
  9. LOXONIN [Concomitant]
     Active Substance: LOXOPROFEN SODIUM
     Dosage: DOSAGE IS UNCERTAIN.
     Route: 065
  10. MUCOSTA [Concomitant]
     Active Substance: REBAMIPIDE
     Dosage: DOSAGE IS UNCERTAIN.
     Route: 065
  11. XELODA [Concomitant]
     Active Substance: CAPECITABINE
     Indication: BREAST CANCER RECURRENT
  12. PERJETA [Suspect]
     Active Substance: PERTUZUMAB
     Indication: BREAST CANCER METASTATIC
     Dosage: 3/4 COURSES, STRENGTH: 420MG/14ML
     Route: 041
     Dates: start: 20130925, end: 20130925
  13. TAXOTERE [Suspect]
     Active Substance: DOCETAXEL
     Indication: NEOADJUVANT THERAPY
     Dosage: DOSAGE IS UNCERTAIN.
     Route: 041
     Dates: start: 200802
  14. MOXIFLOXACIN HYDROCHLORIDE. [Concomitant]
     Active Substance: MOXIFLOXACIN HYDROCHLORIDE
     Dosage: DOSAGE IS UNCERTAIN.
     Route: 047
  15. ENDOXAN [Concomitant]
     Active Substance: CYCLOPHOSPHAMIDE
     Indication: NEOADJUVANT THERAPY
     Route: 041
     Dates: start: 200711
  16. GEMZAR [Concomitant]
     Active Substance: GEMCITABINE HYDROCHLORIDE
     Indication: BREAST CANCER RECURRENT
     Route: 065
     Dates: start: 20130327, end: 20130515
  17. CONIEL [Concomitant]
     Active Substance: BENIDIPINE HYDROCHLORIDE
     Dosage: DOSAGE IS UNCERTAIN.
     Route: 065
  18. HALAVEN [Concomitant]
     Active Substance: ERIBULIN MESYLATE
     Indication: BREAST CANCER RECURRENT
     Route: 065
     Dates: start: 201206, end: 201302
  19. SELBEX [Concomitant]
     Active Substance: TEPRENONE
     Dosage: DOSAGE IS UNCERTAIN.
     Route: 065
  20. XELODA [Concomitant]
     Active Substance: CAPECITABINE
     Indication: BREAST CANCER RECURRENT
  21. TAXOTERE [Suspect]
     Active Substance: DOCETAXEL
     Indication: BREAST CANCER RECURRENT
     Dosage: DOSAGE IS UNCERTAIN.
     Route: 041
     Dates: start: 20130926, end: 20130926
  22. HERCEPTIN [Suspect]
     Active Substance: TRASTUZUMAB
     Indication: BREAST CANCER RECURRENT
     Dosage: DOSAGE IS UNCERTAIN.
     Route: 041
     Dates: start: 200805, end: 200905
  23. ALDACTONE [Concomitant]
     Active Substance: SPIRONOLACTONE
     Dosage: DOSAGE IS UNCERTAIN.
     Route: 065
  24. TYKERB [Concomitant]
     Active Substance: LAPATINIB DITOSYLATE
     Indication: BREAST CANCER RECURRENT
     Route: 048
     Dates: start: 200911
  25. VINORELBINE TARTRATE. [Concomitant]
     Active Substance: VINORELBINE TARTRATE
     Indication: BREAST CANCER RECURRENT
     Route: 041
  26. PACLITAXEL. [Concomitant]
     Active Substance: PACLITAXEL
     Indication: BREAST CANCER RECURRENT
     Route: 041
  27. HERCEPTIN [Suspect]
     Active Substance: TRASTUZUMAB
     Route: 041
     Dates: start: 20130327, end: 20130515
  28. TAXOTERE [Suspect]
     Active Substance: DOCETAXEL
     Indication: BREAST CANCER RECURRENT
     Dosage: DOSAGE IS UNCERTAIN.
     Route: 041
     Dates: start: 20130603, end: 20130812

REACTIONS (6)
  - Vena cava thrombosis [Unknown]
  - Tumour embolism [Unknown]
  - Intraventricular haemorrhage [Unknown]
  - Ascites [Not Recovered/Not Resolved]
  - Disease progression [Fatal]
  - Ileal perforation [Unknown]

NARRATIVE: CASE EVENT DATE: 20131003
